FAERS Safety Report 11480473 (Version 1)
Quarter: 2015Q3

REPORT INFORMATION
  Report Type: Report from Study
  Country: GB (occurrence: GB)
  Receive Date: 20150909
  Receipt Date: 20150909
  Transmission Date: 20151125
  Serious: Yes (Death, Other)
  Sender: FDA-Public Use
  Company Number: GB-CLARIS PHARMASERVICES-1041763

PATIENT
  Age: 18 Year
  Sex: Female

DRUGS (1)
  1. METRONIDAZOLE. [Suspect]
     Active Substance: METRONIDAZOLE
     Indication: DIARRHOEA
     Route: 048

REACTIONS (6)
  - Shock [None]
  - Acute hepatic failure [Fatal]
  - Metabolic acidosis [None]
  - Activated partial thromboplastin time prolonged [None]
  - Ischaemia [None]
  - Blood glucose increased [None]
